FAERS Safety Report 4983364-X (Version None)
Quarter: 2006Q2

REPORT INFORMATION
  Report Type: 
  Country: None (occurrence: None)
  Receive Date: 20060426
  Receipt Date: 20060104
  Transmission Date: 20061013
  Serious: Yes (Death, Other)
  Sender: FDA-Public Use
  Company Number: US-MERCK-0601USA00637

PATIENT
  Age: 78 Year
  Sex: Male
  Weight: 93 kg

DRUGS (19)
  1. VASOTEC [Concomitant]
     Indication: HYPERTENSION
     Route: 048
     Dates: start: 19980201, end: 20031201
  2. TERAZOSIN HYDROCHLORIDE [Concomitant]
     Indication: CARDIAC DISORDER
     Route: 065
     Dates: start: 19981101, end: 20031201
  3. TERAZOSIN HYDROCHLORIDE [Concomitant]
     Indication: HYPERTENSION
     Route: 065
     Dates: start: 19981101, end: 20031201
  4. LANOXIN [Concomitant]
     Indication: ATRIAL FIBRILLATION
     Route: 065
     Dates: start: 19980701, end: 20031201
  5. EFUDEX [Concomitant]
     Indication: SKIN PAPILLOMA
     Route: 065
  6. COUMADIN [Concomitant]
     Indication: CEREBROVASCULAR ACCIDENT PROPHYLAXIS
     Route: 065
     Dates: start: 19980701, end: 20021001
  7. COUMADIN [Concomitant]
     Indication: ATRIAL FIBRILLATION
     Route: 065
     Dates: start: 19980701, end: 20021001
  8. PROPOXYPHENE HYDROCHLORIDE [Concomitant]
     Indication: PAIN
     Route: 065
     Dates: start: 20000322, end: 20000301
  9. WARFARIN [Concomitant]
     Indication: CEREBROVASCULAR ACCIDENT PROPHYLAXIS
     Route: 065
     Dates: start: 20030301, end: 20031201
  10. WARFARIN [Concomitant]
     Indication: ATRIAL FIBRILLATION
     Route: 065
     Dates: start: 20030301, end: 20031201
  11. VIOXX [Suspect]
     Indication: OSTEOARTHRITIS
     Route: 048
     Dates: start: 20000201, end: 20031205
  12. VIOXX [Suspect]
     Route: 048
     Dates: start: 20000201, end: 20031205
  13. VIOXX [Suspect]
     Route: 048
     Dates: start: 20020701, end: 20031205
  14. VIOXX [Suspect]
     Indication: INTERVERTEBRAL DISC DEGENERATION
     Route: 048
     Dates: start: 20000201, end: 20031205
  15. VIOXX [Suspect]
     Route: 048
     Dates: start: 20000201, end: 20031205
  16. VIOXX [Suspect]
     Route: 048
     Dates: start: 20020701, end: 20031205
  17. HYDROCHLOROTHIAZIDE [Concomitant]
     Indication: HYPERTENSION
     Route: 065
     Dates: start: 19980701, end: 20031201
  18. CARTIA (ASPIRIN) [Concomitant]
     Indication: CARDIAC DISORDER
     Route: 065
     Dates: start: 20000401, end: 20031201
  19. MECLIZINE [Concomitant]
     Indication: NAUSEA
     Route: 065

REACTIONS (5)
  - ACUTE MYOCARDIAL INFARCTION [None]
  - COLONIC POLYP [None]
  - MENISCUS LESION [None]
  - NASAL DISORDER [None]
  - VENTRICULAR FIBRILLATION [None]
